FAERS Safety Report 18331236 (Version 1)
Quarter: 2020Q3

REPORT INFORMATION
  Report Type: Spontaneous
  Country: US (occurrence: US)
  Receive Date: 20200930
  Receipt Date: 20200930
  Transmission Date: 20201103
  Serious: Yes (Life-Threatening, Hospitalization)
  Sender: FDA-Public Use
  Company Number: US-MYLANLABS-2020M1083633

PATIENT
  Age: 37 Year
  Sex: Male

DRUGS (10)
  1. EPINEPHRINE. [Suspect]
     Active Substance: EPINEPHRINE
     Indication: SHOCK
     Dosage: 0.03 MICROG/KG/MIN
     Route: 065
  2. NITRIC OXIDE. [Suspect]
     Active Substance: NITRIC OXIDE
     Indication: SHOCK
     Dosage: 15 PPM
  3. NOREPINEPHRINE. [Suspect]
     Active Substance: NOREPINEPHRINE
     Dosage: 0.03 MICROG/KG/MIN
  4. MILRINONE [Suspect]
     Active Substance: MILRINONE
     Indication: SHOCK
     Dosage: 0.25 MICROG/KG/MIN
     Route: 065
  5. NITRIC OXIDE. [Suspect]
     Active Substance: NITRIC OXIDE
     Indication: BLOOD PRESSURE INCREASED
  6. VASOPRESSIN. [Suspect]
     Active Substance: VASOPRESSIN
     Indication: SHOCK
     Dosage: INTERMITTANT
     Route: 065
  7. ANTITHYMOCYTE IMMUNOGLOBULIN [Concomitant]
     Active Substance: THYMOCYTE IMMUNE GLOBULIN NOS
     Indication: IMMUNOSUPPRESSANT DRUG THERAPY
     Dosage: UNK
     Route: 065
  8. NOREPINEPHRINE. [Suspect]
     Active Substance: NOREPINEPHRINE
     Dosage: 0.1 MICROG/KG/MIN
  9. NOREPINEPHRINE. [Suspect]
     Active Substance: NOREPINEPHRINE
     Indication: SHOCK
     Dosage: 0.25MICROG/KG/MIN
  10. NITRIC OXIDE. [Suspect]
     Active Substance: NITRIC OXIDE
     Indication: HYPOXIA

REACTIONS (1)
  - Drug ineffective [Unknown]
